FAERS Safety Report 5175744-7 (Version None)
Quarter: 2006Q4

REPORT INFORMATION
  Report Type: 
  Country: None (occurrence: None)
  Receive Date: 20061215
  Receipt Date: 20041117
  Transmission Date: 20070319
  Serious: Yes (Other)
  Sender: FDA-Public Use
  Company Number: DE-ROCHE-386409

PATIENT
  Age: 59 Year
  Sex: Male
  Weight: 64 kg

DRUGS (6)
  1. PEG-INTERFERON ALFA 2A (RO 25-8310) [Suspect]
     Route: 058
     Dates: start: 20041109, end: 20041112
  2. PEG-INTERFERON ALFA 2A (RO 25-8310) [Suspect]
     Route: 058
     Dates: start: 20041119
  3. RIBAVIRIN [Suspect]
     Route: 048
     Dates: start: 20041109
  4. METOPROLOL SUCCINATE [Concomitant]
     Dates: start: 20040828
  5. PANTOPRAZOL [Concomitant]
     Dates: start: 20040921
  6. ACETAMINOPHEN [Concomitant]
     Dates: start: 20040921

REACTIONS (2)
  - FACIAL PALSY [None]
  - TINNITUS [None]
